FAERS Safety Report 7647629-5 (Version None)
Quarter: 2011Q3

REPORT INFORMATION
  Report Type: 
  Country: None (occurrence: None)
  Receive Date: 20110801
  Receipt Date: 20100419
  Transmission Date: 20111222
  Serious: Yes (Death, Hospitalization, Other)
  Sender: FDA-Public Use
  Company Number: US-AMGEN-US353588

PATIENT
  Age: 71 Year
  Sex: Male
  Weight: 90.6 kg

DRUGS (12)
  1. NPLATE [Suspect]
     Indication: MYELODYSPLASTIC SYNDROME
     Dosage: 500 A?G, UNK
     Route: 058
     Dates: start: 20090415, end: 20091001
  2. LEVOFLOXACIN [Concomitant]
  3. CYTARABINE [Concomitant]
     Dosage: 1 G, UNK
  4. FLUCONAZOLE [Concomitant]
  5. BLOOD CELLS, PACKED HUMAN [Concomitant]
     Dosage: UNK UNK, UNK
     Dates: start: 20090413
  6. PLATELETS [Concomitant]
  7. METOPROLOL TARTRATE [Concomitant]
  8. AZACITIDINE [Concomitant]
     Dosage: 75 MG/M2, UNK
     Route: 058
     Dates: start: 20090401
  9. VIDARABINE [Concomitant]
  10. DEFEROXAMINE MESYLATE [Concomitant]
  11. AMINOCAPROIC ACID [Concomitant]
     Dosage: UNK UNK, UNK
     Route: 048
  12. DAPTOMYCIN [Concomitant]

REACTIONS (10)
  - DEPRESSION [None]
  - ACUTE MYELOID LEUKAEMIA [None]
  - CARDIAC FAILURE [None]
  - BLAST CELL COUNT INCREASED [None]
  - OEDEMA PERIPHERAL [None]
  - CHRONIC MYELOID LEUKAEMIA [None]
  - GASTROINTESTINAL HAEMORRHAGE [None]
  - ANAEMIA [None]
  - DYSURIA [None]
  - VENOUS THROMBOSIS [None]
